FAERS Safety Report 18844413 (Version 1)
Quarter: 2021Q1

REPORT INFORMATION
  Report Type: Spontaneous
  Country: US (occurrence: US)
  Receive Date: 20210203
  Receipt Date: 20210203
  Transmission Date: 20210419
  Serious: No
  Sender: FDA-Public Use
  Company Number: US-EXELIXIS-CABO-20030782

PATIENT
  Age: 14 Year
  Sex: Male

DRUGS (1)
  1. CABOMETYX [Suspect]
     Active Substance: CABOZANTINIB S-MALATE
     Indication: ALVEOLAR RHABDOMYOSARCOMA

REACTIONS (3)
  - Thyroid disorder [Unknown]
  - Malignant neoplasm progression [Unknown]
  - Off label use [Unknown]
